FAERS Safety Report 23983772 (Version 1)
Quarter: 2024Q2

REPORT INFORMATION
  Report Type: Spontaneous
  Country: JP (occurrence: JP)
  Receive Date: 20240618
  Receipt Date: 20240618
  Transmission Date: 20240715
  Serious: Yes (Hospitalization, Other)
  Sender: FDA-Public Use
  Company Number: JP-CHEPLA-2024007399

PATIENT
  Age: 5 Decade
  Sex: Female
  Weight: 37.5 kg

DRUGS (12)
  1. VALGANCICLOVIR [Suspect]
     Active Substance: VALGANCICLOVIR
     Dosage: VALGANCICLOVIR (450 MG/DAY; LABEL-INDICATED DOSE) WAS INITIATED ON POST OPERATION DAY 43
  2. VALGANCICLOVIR [Suspect]
     Active Substance: VALGANCICLOVIR
     Dosage: VALGANCICLOVIR DOSE WAS REDUCED FROM 450 MG/DAY TO 450 MG/2 DAYS ON POD 69.
  3. VALGANCICLOVIR [Suspect]
     Active Substance: VALGANCICLOVIR
     Dosage: THEREFORE, THE VALGANCICLOVIR DOSE WAS REDUCED FROM 450 MG/ 2 DAYS TO 125 MG/DAY (DRY SYRUP FORMU...
     Route: 048
  4. VALGANCICLOVIR [Suspect]
     Active Substance: VALGANCICLOVIR
     Dosage: THE DOSAGE OF VALGANCICLOVIR WAS REDUCED FROM 125 MG/DAY TO 50 MG/DAY (DRY SYRUP FORMULATION).
     Route: 048
  5. BASILIXIMAB [Suspect]
     Active Substance: BASILIXIMAB
  6. MYCOPHENOLATE MOFETIL [Suspect]
     Active Substance: MYCOPHENOLATE MOFETIL
     Dosage: INITIATED ON POSTOPERATIVE DAY (POD) 1. MYCOPHENOLATE MOFETIL WAS ORALLY ADMINISTERED AT 1,000 MG...
     Route: 048
  7. MYCOPHENOLATE MOFETIL [Suspect]
     Active Substance: MYCOPHENOLATE MOFETIL
     Dosage: THE MYCOPHENOLATE MOFETIL DOSE WAS REDUCED FROM 1,000 TO 500 MG/DAY?DAILY DOSE: 500 MILLIGRAM
  8. METHYLPREDNISOLONE [Suspect]
     Active Substance: METHYLPREDNISOLONE
     Dosage: INTRAVENOUS METHYLPREDNISOLONE AT 125 MG/DAY FOR 3 DAYS AFTER TRANSPLANTATION AND REDUCED TO A ST...
     Route: 042
  9. PREDNISOLONE [Suspect]
     Active Substance: PREDNISOLONE
     Dosage: INTRAVENOUS METHYLPREDNISOLONE AT 125 MG/DAY FOR 3 DAYS AFTER TRANSPLANTATION AND REDUCED TO A ST...
     Route: 048
  10. TACROLIMUS [Suspect]
     Active Substance: TACROLIMUS
  11. GANCICLOVIR [Suspect]
     Active Substance: GANCICLOVIR
     Dosage: DAILY DOSE: 2.5 MILLIGRAM/KG
     Route: 042
  12. ELDECALCITOL [Suspect]
     Active Substance: ELDECALCITOL
     Dosage: DAILY DOSE: 0.75 MICROLITRE

REACTIONS (11)
  - Right ventricular failure [Recovered/Resolved]
  - Pulmonary artery stenosis [Recovered/Resolved]
  - Neutropenia [Unknown]
  - Thrombocytopenia [Unknown]
  - Melaena [Unknown]
  - Anaemia [Unknown]
  - Gastric ulcer [Unknown]
  - Transplant rejection [Unknown]
  - Hypervitaminosis D [Unknown]
  - Nephropathy [Unknown]
  - Leukopenia [Unknown]
